FAERS Safety Report 5366652-7 (Version None)
Quarter: 2007Q2

REPORT INFORMATION
  Report Type: 
  Country: None (occurrence: None)
  Receive Date: 20070619
  Receipt Date: 20070611
  Transmission Date: 20071010
  Serious: Yes (Other)
  Sender: FDA-Public Use
  Company Number: 430019M07USA

PATIENT
  Age: 57 Year
  Sex: Female
  Weight: 68.4932 kg

DRUGS (7)
  1. NOVANTRONE [Suspect]
     Indication: MULTIPLE SCLEROSIS
     Dosage: 12 MG/M2, 1 IN 3 MONTHS
     Dates: end: 20021009
  2. BACLOFEN [Concomitant]
  3. URISPAS [Concomitant]
  4. CELEXA [Concomitant]
  5. ACTONEL [Concomitant]
  6. FOLIC ACID [Concomitant]
  7. ALLOPURINOL [Concomitant]

REACTIONS (1)
  - CHRONIC MYELOID LEUKAEMIA [None]
